FAERS Safety Report 11423693 (Version 1)
Quarter: 2015Q3

REPORT INFORMATION
  Report Type: Spontaneous
  Country: US (occurrence: US)
  Receive Date: 20150827
  Receipt Date: 20150827
  Transmission Date: 20151125
  Serious: No
  Sender: FDA-Public Use
  Company Number: US-JNJFOC-20150213278

PATIENT
  Age: 4 Year
  Sex: Male
  Weight: 19.96 kg

DRUGS (2)
  1. CHILDRENS MOTRIN [Suspect]
     Active Substance: IBUPROFEN
     Route: 048
  2. CHILDRENS MOTRIN [Suspect]
     Active Substance: IBUPROFEN
     Indication: NASOPHARYNGITIS
     Dosage: 2 1/2 TSP
     Route: 048
     Dates: start: 20150213

REACTIONS (2)
  - Product use issue [Unknown]
  - Medication error [Unknown]
